FAERS Safety Report 5273489-6 (Version None)
Quarter: 2007Q1

REPORT INFORMATION
  Report Type: 
  Country: None (occurrence: None)
  Receive Date: 20061219
  Receipt Date: 20060927
  Transmission Date: 20070707
  Serious: Yes (Hospitalization)
  Sender: FDA-Public Use
  Company Number: US-JNJFOC-20060604217

PATIENT
  Age: 37 Year
  Sex: Female
  Weight: 59.1944 kg

DRUGS (3)
  1. ORTHO EVRA [Suspect]
     Indication: CONTRACEPTION
     Dosage: TRANSDERMAL
     Route: 062
     Dates: start: 20030501, end: 20040617
  2. PROPRANOLOL [Concomitant]
  3. HYDROCODONE (HYDROCODONE) [Concomitant]

REACTIONS (1)
  - PULMONARY EMBOLISM [None]
